FAERS Safety Report 15677147 (Version 1)
Quarter: 2018Q4

REPORT INFORMATION
  Report Type: Report from Study
  Country: US (occurrence: US)
  Receive Date: 20181130
  Receipt Date: 20181130
  Transmission Date: 20190205
  Serious: Yes (Other)
  Sender: FDA-Public Use
  Company Number: US-ASTELLAS-2018US028402

PATIENT
  Age: 61 Year
  Sex: Female

DRUGS (1)
  1. ISAVUCONAZOLE [Suspect]
     Active Substance: ISAVUCONAZOLE
     Indication: ASPERGILLUS INFECTION
     Dosage: 372 MG (2X186 MG CAPSULES), ONCE DAILY
     Route: 048
     Dates: start: 20180101

REACTIONS (3)
  - Alopecia [Unknown]
  - Insomnia [Unknown]
  - Fungal infection [Unknown]

NARRATIVE: CASE EVENT DATE: 201801
